FAERS Safety Report 9922257 (Version 1)
Quarter: 2014Q1

REPORT INFORMATION
  Report Type: Report from Study
  Country: BR (occurrence: BR)
  Receive Date: 20140225
  Receipt Date: 20140225
  Transmission Date: 20141002
  Serious: Yes (Death)
  Sender: FDA-Public Use
  Company Number: PHHY2014BR022826

PATIENT
  Sex: Female

DRUGS (2)
  1. EXELON PATCH [Suspect]
     Dosage: 9 MG/ 5 CM2
     Route: 062
  2. DIOVAN [Suspect]
     Dosage: 80 MG, UNK

REACTIONS (1)
  - Death [Fatal]
